FAERS Safety Report 21355689 (Version 1)
Quarter: 2022Q3

REPORT INFORMATION
  Report Type: Spontaneous
  Country: US (occurrence: None)
  Receive Date: 20220920
  Receipt Date: 20220920
  Transmission Date: 20221027
  Serious: Yes (Hospitalization)
  Sender: FDA-Public Use
  Company Number: None

PATIENT
  Sex: Female
  Weight: 63.6 kg

DRUGS (7)
  1. CARBOPLATIN [Suspect]
     Active Substance: CARBOPLATIN
     Dates: end: 20220830
  2. GEMCITABINE HYDROCHLORIDE [Suspect]
     Active Substance: GEMCITABINE HYDROCHLORIDE
     Dates: end: 20220830
  3. ASPIRIN [Concomitant]
     Active Substance: ASPIRIN
  4. CALCIUM\MAGNESIUM [Concomitant]
     Active Substance: CALCIUM\MAGNESIUM
  5. VITAMINS [Concomitant]
     Active Substance: VITAMINS
  6. OMEGA-3 FATTY ACIDS [Concomitant]
     Active Substance: OMEGA-3 FATTY ACIDS
  7. VITAMIN D3 [Concomitant]
     Active Substance: CHOLECALCIFEROL

REACTIONS (8)
  - Fatigue [None]
  - Rash [None]
  - Oral pain [None]
  - Rash erythematous [None]
  - Chills [None]
  - Varicella zoster virus infection [None]
  - Herpes simplex [None]
  - Hyponatraemia [None]

NARRATIVE: CASE EVENT DATE: 20220917
